FAERS Safety Report 9011564 (Version 1)
Quarter: 2013Q1

REPORT INFORMATION
  Report Type: Spontaneous
  Country: CA (occurrence: CA)
  Receive Date: 20130108
  Receipt Date: 20130108
  Transmission Date: 20140127
  Serious: Yes (Other)
  Sender: FDA-Public Use
  Company Number: CA-B.I. PHARMACEUTICALS,INC./RIDGEFIELD-2013-CN-00007CN

PATIENT
  Age: 75 Year
  Sex: Male
  Weight: 127 kg

DRUGS (3)
  1. PRADAX [Suspect]
     Dosage: 220 MG
     Route: 048
  2. APO-BISOPROLOL [Concomitant]
  3. ASPIRIN [Concomitant]

REACTIONS (3)
  - Blood urine present [Recovered/Resolved]
  - Cystitis [Recovered/Resolved]
  - Haemorrhage urinary tract [Recovered/Resolved]
